FAERS Safety Report 19466669 (Version 1)
Quarter: 2021Q2

REPORT INFORMATION
  Report Type: Spontaneous
  Country: US (occurrence: US)
  Receive Date: 20210628
  Receipt Date: 20210628
  Transmission Date: 20210717
  Serious: No
  Sender: FDA-Public Use
  Company Number: US-AMGEN-USASP2021096704

PATIENT
  Sex: Female

DRUGS (4)
  1. REPATHA [Suspect]
     Active Substance: EVOLOCUMAB
     Indication: BLOOD CHOLESTEROL
  2. ZOCOR [Concomitant]
     Active Substance: SIMVASTATIN
  3. REPATHA [Suspect]
     Active Substance: EVOLOCUMAB
     Indication: HYPERCHOLESTEROLAEMIA
     Dosage: UNK UNK, Q2WK
     Route: 065
  4. MEVACOR [Concomitant]
     Active Substance: LOVASTATIN

REACTIONS (5)
  - Peripheral swelling [Unknown]
  - Myalgia [Recovering/Resolving]
  - Blood pressure abnormal [Unknown]
  - Oedema [Recovering/Resolving]
  - Weight increased [Unknown]
